FAERS Safety Report 6774482-4 (Version None)
Quarter: 2010Q2

REPORT INFORMATION
  Report Type: 
  Country: None (occurrence: None)
  Receive Date: 20100617
  Receipt Date: 20100607
  Transmission Date: 20101027
  Serious: Yes (Hospitalization, Other)
  Sender: FDA-Public Use
  Company Number: PHHY2010US36606

PATIENT
  Sex: Male

DRUGS (1)
  1. EXJADE [Suspect]
     Indication: IRON OVERLOAD
     Dosage: 1750 MG, QD
     Route: 048

REACTIONS (3)
  - CENTRAL VENOUS CATHETERISATION [None]
  - INFECTION [None]
  - OSTEOMYELITIS [None]
